FAERS Safety Report 5132563-5 (Version None)
Quarter: 2006Q4

REPORT INFORMATION
  Report Type: 
  Country: None (occurrence: None)
  Receive Date: 20061017
  Receipt Date: 20061006
  Transmission Date: 20070319
  Serious: Yes (Life-Threatening, Hospitalization)
  Sender: FDA-Public Use
  Company Number: E2020-00502-SPO-JP

PATIENT
  Age: 95 Year
  Sex: Female
  Weight: 35 kg

DRUGS (5)
  1. ARICEPT [Suspect]
     Indication: DEMENTIA ALZHEIMER'S TYPE
     Dosage: 5 MG, 1 IN 1 D, ORAL
     Route: 048
     Dates: start: 20060801, end: 20060920
  2. DISOPYRAMIDE [Suspect]
     Indication: ARRHYTHMIA
     Dosage: 300 MG, 2 IN 1 D, ORAL
     Route: 048
     Dates: end: 20060920
  3. PRAVALON (PRAVASTATIN SODIUM) [Concomitant]
  4. CHLORPROMAZINE HCL [Concomitant]
  5. ZOLPIDEM TARTRATE [Concomitant]

REACTIONS (8)
  - ATRIAL FIBRILLATION [None]
  - BRADYCARDIA [None]
  - CONVULSION [None]
  - ELECTROCARDIOGRAM QT PROLONGED [None]
  - LOSS OF CONSCIOUSNESS [None]
  - NODAL RHYTHM [None]
  - VENTRICULAR FIBRILLATION [None]
  - VENTRICULAR TACHYCARDIA [None]
